FAERS Safety Report 25221434 (Version 2)
Quarter: 2025Q3

REPORT INFORMATION
  Report Type: Spontaneous
  Country: US (occurrence: US)
  Receive Date: 20250421
  Receipt Date: 20250709
  Transmission Date: 20251020
  Serious: No
  Sender: PRASCO
  Company Number: US-Prasco Laboratories-PRAS20250164

PATIENT
  Age: 65 Year
  Sex: Female

DRUGS (4)
  1. ESTRADIOL [Suspect]
     Active Substance: ESTRADIOL
     Indication: Atrophic vulvovaginitis
     Route: 067
     Dates: start: 2025, end: 2025
  2. ESTRADIOL [Suspect]
     Active Substance: ESTRADIOL
     Route: 067
  3. ESTRADIOL [Suspect]
     Active Substance: ESTRADIOL
     Route: 067
     Dates: start: 20250330, end: 2025
  4. ESTRADIOL [Suspect]
     Active Substance: ESTRADIOL
     Route: 067

REACTIONS (2)
  - Palpitations [Recovered/Resolved]
  - Dyspnoea [Unknown]

NARRATIVE: CASE EVENT DATE: 20250406
